FAERS Safety Report 4356845-X (Version None)
Quarter: 2004Q2

REPORT INFORMATION
  Report Type: 
  Country: None (occurrence: None)
  Receive Date: 20040507
  Receipt Date: 20040428
  Transmission Date: 20050107
  Serious: Yes (Hospitalization)
  Sender: FDA-Public Use
  Company Number: 2004-04-1674

PATIENT
  Age: 91 Year
  Sex: Male
  Weight: 83 kg

DRUGS (7)
  1. DIPROSONE [Suspect]
     Dosage: TOP-DERM
     Route: 061
  2. KARDEGIC SACHETS (ACETYLSALICYLATE LYSINE) [Suspect]
     Dosage: 75 MG QD ORAL
     Route: 048
     Dates: end: 20040407
  3. IXPRIM (PARACETAMOL/TRAMADOL HYDROCHLORIDE) [Suspect]
     Dosage: TID* ORAL
     Route: 048
     Dates: end: 20040412
  4. IXPRIM (PARACETAMOL/TRAMADOL HYDROCHLORIDE) [Suspect]
     Dosage: TID* ORAL
     Route: 048
     Dates: start: 20040419
  5. SYMBICORT (BUDESONIDE/FORMOTEROL [Suspect]
     Dosage: 400 UG BID INHALATION
     Route: 055
  6. FUROSEMIDE [Suspect]
     Dosage: 40 MG QD ORAL
     Route: 048
  7. MEDIATENSYL (URAPIDIL) [Suspect]
     Dosage: 60 MG BID ORAL
     Route: 048

REACTIONS (6)
  - FALL [None]
  - HAEMATOMA [None]
  - PROTHROMBIN LEVEL DECREASED [None]
  - RENAL FAILURE ACUTE [None]
  - RESPIRATORY ALKALOSIS [None]
  - RHABDOMYOLYSIS [None]
